FAERS Safety Report 10268650 (Version 1)
Quarter: 2014Q2

REPORT INFORMATION
  Report Type: Spontaneous
  Country: US (occurrence: None)
  Receive Date: 20140627
  Receipt Date: 20140627
  Transmission Date: 20141212
  Serious: Yes (Life-Threatening, Disabling)
  Sender: FDA-Public Use
  Company Number: None

PATIENT
  Age: 24 Year
  Sex: Female
  Weight: 90.72 kg

DRUGS (1)
  1. HOMEOPATHIC HCG [Suspect]
     Indication: OBESITY
     Dates: start: 20140618, end: 20140625

REACTIONS (7)
  - Weight decreased [None]
  - Feeling abnormal [None]
  - Depressed mood [None]
  - Headache [None]
  - Nausea [None]
  - Loss of consciousness [None]
  - Fatigue [None]
